FAERS Safety Report 24405038 (Version 2)
Quarter: 2024Q4

REPORT INFORMATION
  Report Type: Spontaneous
  Country: CA (occurrence: CA)
  Receive Date: 20241007
  Receipt Date: 20241017
  Transmission Date: 20250115
  Serious: Yes (Other)
  Sender: ROCHE
  Company Number: CA-ROCHE-10000093821

PATIENT
  Age: 60 Year
  Sex: Female

DRUGS (3)
  1. MYCOPHENOLATE MOFETIL [Suspect]
     Active Substance: MYCOPHENOLATE MOFETIL
     Indication: Amyloidosis
     Route: 065
  2. TACROLIMUS [Suspect]
     Active Substance: TACROLIMUS
     Indication: Amyloidosis
     Route: 065
  3. TACROLIMUS [Suspect]
     Active Substance: TACROLIMUS
     Indication: Product used for unknown indication
     Route: 065

REACTIONS (5)
  - Colitis [Unknown]
  - Drug intolerance [Recovered/Resolved]
  - Glomerular filtration rate decreased [Recovered/Resolved]
  - Toxicity to various agents [Recovered/Resolved]
  - Nephropathy toxic [Unknown]
